FAERS Safety Report 5770792-8 (Version None)
Quarter: 2008Q2

REPORT INFORMATION
  Report Type: 
  Country: None (occurrence: None)
  Receive Date: 20080613
  Receipt Date: 20080515
  Transmission Date: 20081010
  Serious: No
  Sender: FDA-Public Use
  Company Number: US-ABBOTT-08P-163-0451974-00

PATIENT
  Sex: Male
  Weight: 70.37 kg

DRUGS (7)
  1. HUMIRA [Suspect]
     Indication: CROHN'S DISEASE
     Route: 050
     Dates: start: 20080514
  2. CLONAZEPAM [Concomitant]
     Indication: ANXIETY
     Route: 048
     Dates: start: 20080201
  3. GABAPENTIN [Concomitant]
     Indication: ANXIETY
     Route: 048
     Dates: start: 20080201
  4. GABAPENTIN [Concomitant]
     Indication: INSOMNIA
  5. MIRTAZAPINE [Concomitant]
     Indication: ANTIDEPRESSANT THERAPY
     Route: 048
     Dates: start: 20080201
  6. MIRTAZAPINE [Concomitant]
     Indication: INSOMNIA
  7. QUETIAPINE FUMARATE [Concomitant]
     Indication: INSOMNIA
     Route: 048
     Dates: start: 20080201

REACTIONS (1)
  - INJECTION SITE PAIN [None]
